FAERS Safety Report 8036189-5 (Version None)
Quarter: 2012Q1

REPORT INFORMATION
  Report Type: 
  Country: None (occurrence: None)
  Receive Date: 20120111
  Receipt Date: 20120102
  Transmission Date: 20120608
  Serious: Yes (Hospitalization, Other)
  Sender: FDA-Public Use
  Company Number: PHHY2012BR001093

PATIENT
  Sex: Male

DRUGS (5)
  1. AEROLIN ^3M^ [Concomitant]
  2. SPIRIVA [Suspect]
     Dosage: UNK
     Dates: start: 20080101
  3. ENALAPRIL MALEATE [Concomitant]
     Indication: BLOOD PRESSURE
  4. FORMOTEROL FUMARATE [Suspect]
     Indication: EMPHYSEMA
     Dosage: 1 DF, QD
     Dates: start: 20080101
  5. PREDNISONE TAB [Concomitant]
     Indication: DYSPNOEA
     Dosage: 20 MG, BID

REACTIONS (5)
  - OEDEMA PERIPHERAL [None]
  - BLOOD PRESSURE INCREASED [None]
  - ANXIETY [None]
  - DEPRESSION [None]
  - AORTIC ANEURYSM [None]
